FAERS Safety Report 5474793-9 (Version None)
Quarter: 2007Q4

REPORT INFORMATION
  Report Type: 
  Country: None (occurrence: None)
  Receive Date: 20071002
  Receipt Date: 20070928
  Transmission Date: 20080405
  Serious: Yes (Hospitalization, Disabling)
  Sender: FDA-Public Use
  Company Number: B0488023A

PATIENT
  Age: 68 Year
  Sex: Male
  Weight: 61.1 kg

DRUGS (13)
  1. VALTREX [Suspect]
     Dosage: 1000MG THREE TIMES PER DAY
     Route: 048
     Dates: start: 20070913, end: 20070917
  2. ARTIST [Concomitant]
     Indication: HYPERTENSION
     Dosage: 10MG PER DAY
     Route: 048
  3. RENAGEL [Concomitant]
     Route: 048
  4. AMLODIPINE [Concomitant]
     Indication: HYPERTENSION
     Dosage: 5MG PER DAY
     Route: 048
  5. SELBEX [Concomitant]
     Indication: GASTRITIS
     Dosage: 150MG PER DAY
     Route: 048
  6. MIKELAN [Concomitant]
     Route: 065
  7. FAMOTIDINE [Concomitant]
     Indication: GASTRITIS
     Dosage: 20MG PER DAY
     Route: 048
  8. CALTAN [Concomitant]
     Dosage: 1500MG PER DAY
     Route: 048
  9. ALOSENN [Concomitant]
     Indication: CONSTIPATION
     Dosage: .5G PER DAY
     Route: 048
  10. OLMETEC [Concomitant]
     Indication: HYPERTENSION
     Dosage: 20MG PER DAY
     Route: 048
  11. GATIFLOXACIN [Concomitant]
     Route: 065
  12. ZOVIRAX [Concomitant]
     Route: 031
  13. ADONA (AC-17) [Concomitant]
     Dosage: 90MG PER DAY
     Route: 048

REACTIONS (6)
  - ALTERED STATE OF CONSCIOUSNESS [None]
  - DELIRIUM [None]
  - DYSARTHRIA [None]
  - ENCEPHALOPATHY [None]
  - MOTOR DYSFUNCTION [None]
  - OVERDOSE [None]
